FAERS Safety Report 6218526-7 (Version None)
Quarter: 2009Q2

REPORT INFORMATION
  Report Type: 
  Country: None (occurrence: None)
  Receive Date: 20090604
  Receipt Date: 20090604
  Transmission Date: 20091009
  Serious: No
  Sender: FDA-Public Use
  Company Number: None

PATIENT
  Age: 59 Year
  Sex: Female
  Weight: 54.4316 kg

DRUGS (3)
  1. LEVAQUIN [Suspect]
     Indication: LUNG DISORDER
     Dosage: 1 PILL 5 DAYS PO
     Route: 048
     Dates: start: 20080510, end: 20080515
  2. LEVAQUIN [Suspect]
     Indication: LUNG DISORDER
     Dosage: 1 PILL 5 DAYS PO
     Route: 048
     Dates: start: 20090423, end: 20090427
  3. . [Concomitant]

REACTIONS (3)
  - ARTHRALGIA [None]
  - MUSCULOSKELETAL PAIN [None]
  - PAIN IN EXTREMITY [None]
